FAERS Safety Report 9602926 (Version 1)
Quarter: 2013Q4

REPORT INFORMATION
  Report Type: Spontaneous
  Country: US (occurrence: None)
  Receive Date: 20131003
  Receipt Date: 20131003
  Transmission Date: 20140711
  Serious: Yes (Hospitalization)
  Sender: FDA-Public Use
  Company Number: 2013NEUSA00239

PATIENT
  Age: 67 Year
  Sex: Female

DRUGS (18)
  1. NUEDEXTA [Suspect]
     Indication: AFFECT LABILITY
     Dosage: 1 CAP
     Dates: start: 20130812, end: 20130821
  2. ASENDIN [Suspect]
     Dates: start: 20130815
  3. INDERAL(PROPRANOLOL HYDROCHLORIDE) [Concomitant]
  4. CEREFOLIN NAC (CALCIUM MEFOLINATE, CYANOCOBALAMIN, PYRIDOXINE, RIBOFLAVIN) [Concomitant]
  5. ABLIFY(ARIPIPRAZOLE) [Concomitant]
  6. NAMENDA(MEMANTINE HYDROCHLORIDE) [Concomitant]
  7. SENOKOT(SENNA ALEXANDRINA) [Concomitant]
  8. ZOCOR (SIMVASTATIN) [Concomitant]
  9. MULTIVITAMIN (VITAMINS NOS) [Concomitant]
  10. VITAMIN B12(CYANOCOBALAMIN) [Concomitant]
  11. FOSAMAX [Suspect]
  12. FLONASE(FLUTICASONE PROPIONATE) [Concomitant]
  13. LORTAB(HYDROCODONE BITARTRATE, PARACETAMOL, PROMETHAZINE HYDROCHLORIDE) [Concomitant]
  14. SYNTHROID(LEVOTHYROXINE SODIUM) [Concomitant]
  15. MOM(MAGNESIUM HYDROXIDE) [Concomitant]
  16. ASA (ACETYLSALICYLIC ACID) [Concomitant]
  17. CALCIUM + D(CALCIUM CARBONATE, COLECALCIFEROL) [Concomitant]
  18. DEPAKOTE(VALPROATE SEMISODIUM) [Concomitant]

REACTIONS (1)
  - Grand mal convulsion [None]
